FAERS Safety Report 4332588-3 (Version None)
Quarter: 2004Q2

REPORT INFORMATION
  Report Type: 
  Country: None (occurrence: None)
  Receive Date: 20040401
  Receipt Date: 20040322
  Transmission Date: 20050107
  Serious: Yes (Hospitalization)
  Sender: FDA-Public Use
  Company Number: 2004204530DE

PATIENT
  Age: 62 Year
  Sex: Female

DRUGS (3)
  1. VANTIN [Suspect]
     Indication: BRONCHITIS
     Dosage: 400 MG, DAILY , ORAL
     Route: 048
  2. BEZAFIBRATE [Concomitant]
  3. ASCO TOP (ZOLMITRIPTAN) [Concomitant]

REACTIONS (3)
  - BLOOD AMYLASE INCREASED [None]
  - CLOSTRIDIUM COLITIS [None]
  - PANCREATITIS [None]
